FAERS Safety Report 9771368 (Version 1)
Quarter: 2013Q4

REPORT INFORMATION
  Report Type: Spontaneous
  Country: IT (occurrence: IT)
  Receive Date: 20131218
  Receipt Date: 20131218
  Transmission Date: 20140711
  Serious: Yes (Hospitalization)
  Sender: FDA-Public Use
  Company Number: IT-009507513-1312ITA007289

PATIENT
  Age: 7 Month
  Sex: Female
  Weight: 7 kg

DRUGS (1)
  1. NITROGLYCERIN [Suspect]
     Indication: POISONING
     Dosage: 10MG DAILY, TOTAL
     Route: 062
     Dates: start: 20130708, end: 20130708

REACTIONS (1)
  - Malaise [Recovered/Resolved]
